FAERS Safety Report 9826916 (Version 1)
Quarter: 2013Q4

REPORT INFORMATION
  Report Type: Spontaneous
  Country: GB (occurrence: None)
  Receive Date: 20131112
  Receipt Date: 20131112
  Transmission Date: 20140711
  Serious: Yes (Hospitalization)
  Sender: FDA-Public Use
  Company Number: E2B_00001106

PATIENT
  Age: 71 Year
  Sex: Female

DRUGS (8)
  1. LISINOPRIL [Suspect]
     Indication: PRODUCT USED FOR UNKNOWN INDICATION
     Dosage: UNKNOWN (UNKNOWN, UNKNOWN), UNKNOWN
  2. OLMESARTAN [Suspect]
     Indication: PRODUCT USED FOR UNKNOWN INDICATION
     Dosage: UNKNOWN (UNKNOWN, UNKNOWN), UNKNOWN
  3. SPIRONOLACTONE (UNKNOWN) [Suspect]
     Dosage: UNKNOWN (UNKNOWN, UNKNOWN), UNKNOWN
  4. FUROSEMIDE (UNKNOWN) [Suspect]
     Indication: PRODUCT USED FOR UNKNOWN INDICATION
     Dosage: UNKNOWN (UNKOWN, UNKNOWN), UNKNOWN
  5. AMLODIPINE (UNKNOWN) [Concomitant]
  6. DOXAZOSIN (UNKNOWN) [Concomitant]
  7. MOXONIDINE (UNKNOWN) [Concomitant]
  8. ATENOLOL (UNKNOWN) [Concomitant]

REACTIONS (1)
  - Renal failure acute [None]
